FAERS Safety Report 7677478-3 (Version None)
Quarter: 2011Q3

REPORT INFORMATION
  Report Type: 
  Country: None (occurrence: None)
  Receive Date: 20110811
  Receipt Date: 20110525
  Transmission Date: 20111222
  Serious: Yes (Hospitalization)
  Sender: FDA-Public Use
  Company Number: US-BRISTOL-MYERS SQUIBB COMPANY-15778392

PATIENT
  Age: 52 Year
  Sex: Male

DRUGS (3)
  1. RITONAVIR [Concomitant]
  2. TRUVADA [Concomitant]
  3. REYATAZ [Suspect]
     Indication: HIV INFECTION

REACTIONS (1)
  - PANCREATITIS [None]
